FAERS Safety Report 25087401 (Version 2)
Quarter: 2025Q1

REPORT INFORMATION
  Report Type: Report from Study
  Country: CA (occurrence: CA)
  Receive Date: 20250318
  Receipt Date: 20250328
  Transmission Date: 20250408
  Serious: Yes (Other)
  Sender: CELLTRION
  Company Number: CA-CELLTRION INC.-2024CA030382

PATIENT

DRUGS (3)
  1. USTEKINUMAB [Suspect]
     Active Substance: USTEKINUMAB
     Indication: Crohn^s disease
     Dosage: 90 MG EVERY 4 WEEKS
     Dates: start: 20241216
  2. USTEKINUMAB [Suspect]
     Active Substance: USTEKINUMAB
     Dosage: 1 MG EVERY 4 WEEKS
     Route: 058
     Dates: start: 20250113
  3. USTEKINUMAB [Suspect]
     Active Substance: USTEKINUMAB
     Dosage: 1 ML, ONCE EVERY 4 WEEKS
     Route: 058

REACTIONS (5)
  - Cataract [Unknown]
  - Nasopharyngitis [Unknown]
  - Off label use [Unknown]
  - Intentional dose omission [Unknown]
  - Underdose [Unknown]

NARRATIVE: CASE EVENT DATE: 20241126
